FAERS Safety Report 21792946 (Version 1)
Quarter: 2022Q4

REPORT INFORMATION
  Report Type: Spontaneous
  Country: CN (occurrence: CN)
  Receive Date: 20221229
  Receipt Date: 20221229
  Transmission Date: 20230113
  Serious: Yes (Other)
  Sender: FDA-Public Use
  Company Number: CN-ALKEM LABORATORIES LIMITED-CN-ALKEM-2022-11723

PATIENT

DRUGS (1)
  1. SIROLIMUS [Suspect]
     Active Substance: SIROLIMUS
     Indication: Multiple congenital abnormalities
     Dosage: 0.8 MILLIGRAM/SQ. METER, BID (TWICE-A-DAY)
     Route: 048

REACTIONS (2)
  - Neutropenia [Unknown]
  - Mouth ulceration [Unknown]
